FAERS Safety Report 26090259 (Version 1)
Quarter: 2025Q4

REPORT INFORMATION
  Report Type: Spontaneous
  Country: AU (occurrence: AU)
  Receive Date: 20251126
  Receipt Date: 20251126
  Transmission Date: 20260118
  Serious: Yes (Hospitalization, Other)
  Sender: STRIDES
  Company Number: AU-STRIDES ARCOLAB LIMITED-2025SP014543

PATIENT
  Age: 18 Year
  Sex: Female

DRUGS (8)
  1. ACETAZOLAMIDE [Suspect]
     Active Substance: ACETAZOLAMIDE
     Indication: Papilloedema
     Dosage: 250 MILLIGRAM, BID ON DAY 2 OF ADMISSION
     Route: 065
  2. ACETAZOLAMIDE [Suspect]
     Active Substance: ACETAZOLAMIDE
     Dosage: 750 MILLIGRAM, TID
     Route: 065
  3. AMITRIPTYLINE [Suspect]
     Active Substance: AMITRIPTYLINE
     Indication: Adverse drug reaction
     Dosage: 25 MILLIGRAMS AT NIGHT
     Route: 065
  4. AMITRIPTYLINE [Suspect]
     Active Substance: AMITRIPTYLINE
     Indication: Prophylaxis
  5. DABIGATRAN [Suspect]
     Active Substance: DABIGATRAN
     Indication: Cerebral venous sinus thrombosis
     Dosage: 150 MILLIGRAM, BID
     Route: 048
  6. TESTOSTERONE UNDECANOATE [Concomitant]
     Active Substance: TESTOSTERONE UNDECANOATE
     Indication: Transgender hormonal therapy
     Dosage: 1000 MILLIGRAMS
     Route: 030
     Dates: start: 202402
  7. NORETHINDRONE [Concomitant]
     Active Substance: NORETHINDRONE
     Indication: Transgender hormonal therapy
     Dosage: 5 MILLIGRAM, BID
     Route: 065
     Dates: start: 202402
  8. HEPARIN [Concomitant]
     Active Substance: HEPARIN SODIUM
     Indication: Cerebral venous sinus thrombosis
     Dosage: 70 MILLIGRAMS, BID THERAPEUTIC LOW MOLECULAR WEIGHT
     Route: 058

REACTIONS (2)
  - Condition aggravated [Recovering/Resolving]
  - Off label use [Unknown]
